FAERS Safety Report 13895501 (Version 1)
Quarter: 2017Q3

REPORT INFORMATION
  Report Type: Spontaneous
  Country: US (occurrence: US)
  Receive Date: 20170823
  Receipt Date: 20170823
  Transmission Date: 20171127
  Serious: No
  Sender: FDA-Public Use
  Company Number: US-PFIZER INC-2017356404

PATIENT
  Sex: Female

DRUGS (5)
  1. CYTARABINE. [Suspect]
     Active Substance: CYTARABINE
     Dosage: UNK
     Dates: end: 20170622
  2. BLINCYTO [Suspect]
     Active Substance: BLINATUMOMAB
     Dosage: SECOND CYCLICAL TREATMENT
     Dates: start: 20170521, end: 20170524
  3. BLINCYTO [Suspect]
     Active Substance: BLINATUMOMAB
     Dosage: UNK
     Dates: end: 20170622
  4. SOLU-CORTEF [Suspect]
     Active Substance: HYDROCORTISONE SODIUM SUCCINATE
     Dosage: 1 IN 2 WEEK
     Route: 037
     Dates: end: 20170622
  5. BLINCYTO [Suspect]
     Active Substance: BLINATUMOMAB
     Indication: ACUTE LYMPHOCYTIC LEUKAEMIA RECURRENT
     Dosage: FIRST CYCLICAL TREATMENT
     Dates: start: 20170410, end: 20170413

REACTIONS (2)
  - Incorrect route of drug administration [Unknown]
  - Blood alkaline phosphatase increased [Unknown]
